FAERS Safety Report 21637612 (Version 2)
Quarter: 2025Q1

REPORT INFORMATION
  Report Type: Spontaneous
  Country: US (occurrence: US)
  Receive Date: 20221124
  Receipt Date: 20250108
  Transmission Date: 20250408
  Serious: No
  Sender: GLAXOSMITHKLINE
  Company Number: US-GSKCCFUS-Case-01563117_AE-88381

PATIENT
  Sex: Female

DRUGS (1)
  1. BENLYSTA [Suspect]
     Active Substance: BELIMUMAB
     Indication: Product used for unknown indication
     Route: 058
     Dates: start: 20241031

REACTIONS (1)
  - Product dose omission issue [Unknown]
